FAERS Safety Report 4543439-6 (Version None)
Quarter: 2005Q1

REPORT INFORMATION
  Report Type: 
  Country: None (occurrence: None)
  Receive Date: 20050103
  Receipt Date: 20041227
  Transmission Date: 20050727
  Serious: Yes (Hospitalization)
  Sender: FDA-Public Use
  Company Number: SE-MERCK-0412SWE00040

PATIENT
  Age: 52 Year
  Sex: Female

DRUGS (9)
  1. VIOXX [Suspect]
     Indication: FIBROMYALGIA
     Route: 048
     Dates: start: 20000101, end: 20040901
  2. LAMIVUDINE AND ZIDOVUDINE [Concomitant]
     Route: 065
  3. NELFINAVIR MESYLATE [Concomitant]
     Route: 065
  4. AMITRIPTYLINE HYDROCHLORIDE [Concomitant]
     Route: 065
  5. ASPIRIN [Concomitant]
     Route: 065
  6. DIPYRIDAMOLE [Concomitant]
     Route: 065
  7. VALACYCLOVIR HYDROCHLORIDE [Concomitant]
     Route: 065
  8. PROPIOMAZINE MALEATE [Concomitant]
     Route: 065
  9. CARBAMAZEPINE [Concomitant]
     Route: 065

REACTIONS (2)
  - CEREBRAL ATHEROSCLEROSIS [None]
  - CEREBROVASCULAR ACCIDENT [None]
